FAERS Safety Report 7169490-8 (Version None)
Quarter: 2010Q4

REPORT INFORMATION
  Report Type: 
  Country: None (occurrence: None)
  Receive Date: 20101217
  Receipt Date: 20101208
  Transmission Date: 20110411
  Serious: Yes (Other)
  Sender: FDA-Public Use
  Company Number: US-BIOGENIDEC-2010BI043475

PATIENT
  Age: 54 Year
  Sex: Female

DRUGS (1)
  1. AVONEX [Suspect]
     Indication: MULTIPLE SCLEROSIS
     Route: 030
     Dates: start: 20100923

REACTIONS (6)
  - DEPRESSION [None]
  - HEADACHE [None]
  - HYPERTENSION [None]
  - ORAL NEOPLASM [None]
  - TREMOR [None]
  - VISION BLURRED [None]
